FAERS Safety Report 8812889 (Version 2)
Quarter: 2012Q4

REPORT INFORMATION
  Report Type: Report from Study
  Country: JP (occurrence: JP)
  Receive Date: 20120927
  Receipt Date: 20121024
  Transmission Date: 20130627
  Serious: Yes (Hospitalization, Other)
  Sender: FDA-Public Use
  Company Number: JP-ROCHE-1134306

PATIENT
  Age: 68 Year
  Sex: Female

DRUGS (14)
  1. METHOXY POLYETHYLENE GLYCOL-EPOETIN BETA [Suspect]
     Indication: NEPHROGENIC ANAEMIA
     Route: 042
     Dates: start: 20110817, end: 20110817
  2. METHOXY POLYETHYLENE GLYCOL-EPOETIN BETA [Suspect]
     Indication: NEPHROGENIC ANAEMIA
     Route: 042
     Dates: start: 20110914, end: 20110914
  3. METHOXY POLYETHYLENE GLYCOL-EPOETIN BETA [Suspect]
     Indication: NEPHROGENIC ANAEMIA
     Route: 042
     Dates: start: 20111019, end: 20111019
  4. PHOSBLOCK [Concomitant]
     Route: 048
     Dates: end: 20110916
  5. GANATON [Concomitant]
     Route: 048
  6. FOSRENOL [Concomitant]
     Route: 048
  7. BAYASPIRIN [Concomitant]
     Route: 048
  8. MICARDIS [Concomitant]
     Route: 048
  9. ADALAT CR [Concomitant]
     Route: 048
  10. AMLODIPINE [Concomitant]
     Route: 048
  11. RASILEZ [Concomitant]
     Route: 048
  12. OMEPRAL [Concomitant]
     Route: 048
     Dates: end: 20110929
  13. OXAROL [Concomitant]
     Route: 042
  14. PARIET [Concomitant]
     Route: 048
     Dates: start: 20110930

REACTIONS (2)
  - Haemorrhoidal haemorrhage [Recovered/Resolved]
  - Drug ineffective [Unknown]
